FAERS Safety Report 9078757 (Version 1)
Quarter: 2013Q1

REPORT INFORMATION
  Report Type: Report from Study
  Country: US (occurrence: US)
  Receive Date: 20130130
  Receipt Date: 20130130
  Transmission Date: 20140127
  Serious: Yes (Hospitalization, Other)
  Sender: FDA-Public Use
  Company Number: US-ABBOTT-12P-163-0960119-00

PATIENT
  Age: 64 Year
  Sex: Female

DRUGS (9)
  1. HUMIRA 40 MG/0.8 ML PEN [Suspect]
     Indication: ANKYLOSING SPONDYLITIS
     Dates: start: 2004, end: 201206
  2. VERAPAMIL [Concomitant]
     Indication: HYPERTENSION
  3. GLUCOTROL [Concomitant]
     Indication: DIABETES MELLITUS
     Dosage: 10MG DAILY
  4. RANITIDINE [Concomitant]
     Indication: DYSPEPSIA
     Dosage: 300MG DAILY
  5. PRILOSEC [Concomitant]
     Indication: DYSPEPSIA
     Dosage: 40MG DAILY
  6. GABAPENTIN [Concomitant]
     Indication: PAIN
  7. LANTUS [Concomitant]
     Indication: DIABETES MELLITUS
     Dosage: 15 UNITS AT BREAKFAST
  8. AMBIEN [Concomitant]
     Indication: INSOMNIA
     Dosage: AT HS
  9. AMBIEN [Concomitant]
     Indication: STRESS

REACTIONS (8)
  - Abdominal abscess [Recovering/Resolving]
  - Cellulitis [Recovering/Resolving]
  - Staphylococcal infection [Recovering/Resolving]
  - Clostridium difficile infection [Recovering/Resolving]
  - Abdominal pain [Recovering/Resolving]
  - Blood lactic acid [Recovering/Resolving]
  - Herpes zoster [Unknown]
  - Stress [Unknown]
